FAERS Safety Report 23876055 (Version 1)
Quarter: 2024Q2

REPORT INFORMATION
  Report Type: Spontaneous
  Country: US (occurrence: US)
  Receive Date: 20240520
  Receipt Date: 20240520
  Transmission Date: 20240716
  Serious: Yes (Hospitalization, Other)
  Sender: FDA-Public Use
  Company Number: US-BRISTOL-MYERS SQUIBB COMPANY-2024-077147

PATIENT
  Age: 76 Year
  Sex: Female
  Weight: 56.25 kg

DRUGS (1)
  1. ELIQUIS [Suspect]
     Active Substance: APIXABAN
     Indication: Thrombosis prophylaxis
     Route: 048

REACTIONS (6)
  - Diarrhoea [Unknown]
  - Gastrointestinal disorder [Unknown]
  - Blood cholesterol abnormal [Unknown]
  - Thyroid disorder [Unknown]
  - Weight decreased [Unknown]
  - Clostridium difficile infection [Unknown]

NARRATIVE: CASE EVENT DATE: 20240101
